FAERS Safety Report 6247631-4 (Version None)
Quarter: 2009Q2

REPORT INFORMATION
  Report Type: 
  Country: None (occurrence: None)
  Receive Date: 20090626
  Receipt Date: 20090624
  Transmission Date: 20091009
  Serious: Yes (Other)
  Sender: FDA-Public Use
  Company Number: FR-BRISTOL-MYERS SQUIBB COMPANY-14678692

PATIENT
  Age: 52 Year
  Sex: Male

DRUGS (5)
  1. ORENCIA [Suspect]
     Dosage: DOSAGE FORM: VIALS;SECOND INFUSION OF 3 VIALS
     Route: 042
  2. CORTANCYL [Concomitant]
  3. FOSAMAX [Concomitant]
  4. METFORMIN HCL [Concomitant]
  5. DAFALGAN [Concomitant]

REACTIONS (2)
  - LEUKOPENIA [None]
  - THROMBOCYTOPENIA [None]
